FAERS Safety Report 12217801 (Version 2)
Quarter: 2016Q2

REPORT INFORMATION
  Report Type: Spontaneous
  Country: US (occurrence: US)
  Receive Date: 20160329
  Receipt Date: 20160502
  Transmission Date: 20160815
  Serious: Yes (Hospitalization)
  Sender: FDA-Public Use
  Company Number: US-MALLINCKRODT-T201600971

PATIENT
  Age: 71 Year
  Sex: Female
  Weight: 67 kg

DRUGS (3)
  1. H.P. ACTHAR [Suspect]
     Active Substance: CORTICOTROPIN
     Indication: PROTEINURIA
     Dosage: 40 UNITS TWICE A WEEK
     Route: 065
     Dates: start: 20160312, end: 20160312
  2. H.P. ACTHAR [Suspect]
     Active Substance: CORTICOTROPIN
     Indication: NEPHROTIC SYNDROME
  3. H.P. ACTHAR [Suspect]
     Active Substance: CORTICOTROPIN
     Indication: TRANSPLANT
     Dosage: 40 UNITS TWICE A WEEK
     Route: 058
     Dates: start: 20160308, end: 20160401

REACTIONS (8)
  - Nausea [Not Recovered/Not Resolved]
  - Internal haemorrhage [Unknown]
  - Chills [Not Recovered/Not Resolved]
  - Vomiting [Not Recovered/Not Resolved]
  - Hypertension [Not Recovered/Not Resolved]
  - Chest pain [Not Recovered/Not Resolved]
  - Cardiac failure congestive [Unknown]
  - Pulmonary oedema [Unknown]

NARRATIVE: CASE EVENT DATE: 20160312
